FAERS Safety Report 14649886 (Version 5)
Quarter: 2018Q2

REPORT INFORMATION
  Report Type: Report from Study
  Country: ES (occurrence: ES)
  Receive Date: 20180316
  Receipt Date: 20180620
  Transmission Date: 20180711
  Serious: Yes (Hospitalization, Other)
  Sender: FDA-Public Use
  Company Number: ES-BAXTER-2018BAX008414

PATIENT
  Age: 23 Year
  Sex: Male

DRUGS (12)
  1. VINCRISTINE SULFATE. [Suspect]
     Active Substance: VINCRISTINE SULFATE
     Indication: ACUTE LYMPHOCYTIC LEUKAEMIA
     Dosage: INDUCTION TREATMENT
     Route: 065
     Dates: start: 20130212
  2. IMATINIB [Suspect]
     Active Substance: IMATINIB
     Indication: ACUTE LYMPHOCYTIC LEUKAEMIA
     Dosage: INDUCTION TREATMENT REGIMEN #1; QD
     Route: 065
     Dates: start: 20130212
  3. ARA-C [Suspect]
     Active Substance: CYTARABINE
     Indication: ACUTE LYMPHOCYTIC LEUKAEMIA
     Dosage: CONSOLIDATION TREATMENT, REGIMEN #1, AT HIGH DOSE
     Route: 065
     Dates: start: 20130325, end: 20130725
  4. PREDNISONE. [Suspect]
     Active Substance: PREDNISONE
     Indication: ACUTE LYMPHOCYTIC LEUKAEMIA
     Dosage: INDUCTION TREATMENT, REGIMEN #1,
     Route: 065
     Dates: start: 20130212
  5. IMATINIB [Suspect]
     Active Substance: IMATINIB
     Indication: SYSTEMIC SCLERODERMA
     Dosage: CONSOLIDATION TREATMENT, REGIMEN #2; QD
     Route: 065
     Dates: start: 20130325, end: 20130725
  6. MERCAPTOPURINE. [Suspect]
     Active Substance: MERCAPTOPURINE
     Indication: ACUTE LYMPHOCYTIC LEUKAEMIA
     Dosage: MAINTENANCE TREATMENT, REGIMEN #1,
     Route: 065
     Dates: start: 20131022
  7. DAUNORUBICIN HYDROCHLORIDE. [Suspect]
     Active Substance: DAUNORUBICIN HYDROCHLORIDE
     Indication: ACUTE LYMPHOCYTIC LEUKAEMIA
     Dosage: INDUCTION TREATMENT
     Route: 065
     Dates: start: 20130212
  8. METHOTREXATE SODIUM. [Suspect]
     Active Substance: METHOTREXATE SODIUM
     Indication: PRODUCT USED FOR UNKNOWN INDICATION
     Dosage: MAINTENANCE TREATMENT, REGIMEN #2,
     Route: 065
     Dates: start: 20131022
  9. GENOXAL [Suspect]
     Active Substance: CYCLOPHOSPHAMIDE
     Indication: ACUTE LYMPHOCYTIC LEUKAEMIA
     Dosage: REGIMEN #1, CONDITIONING REGIMEN
     Route: 065
     Dates: start: 20130823
  10. METHOTREXATE SODIUM. [Suspect]
     Active Substance: METHOTREXATE SODIUM
     Indication: ACUTE LYMPHOCYTIC LEUKAEMIA
     Dosage: CONSOLIDATION TREATMENT, REGIMEN #1, AT HIGH DOSE
     Route: 065
     Dates: start: 20130323, end: 20130725
  11. METHOTREXATE SODIUM. [Suspect]
     Active Substance: METHOTREXATE SODIUM
     Dosage: UNKNOWN DOSE
     Route: 065
     Dates: start: 20131023
  12. IMATINIB [Suspect]
     Active Substance: IMATINIB
     Dosage: MAINTENANCE TREATMENT, REGIMEN #3
     Route: 065
     Dates: start: 20131022

REACTIONS (3)
  - Acute lymphocytic leukaemia recurrent [Unknown]
  - Musculoskeletal chest pain [Unknown]
  - Pyrexia [Unknown]

NARRATIVE: CASE EVENT DATE: 20140415
